FAERS Safety Report 5849396-4 (Version None)
Quarter: 2008Q3

REPORT INFORMATION
  Report Type: 
  Country: None (occurrence: None)
  Receive Date: 20080815
  Receipt Date: 20080805
  Transmission Date: 20090109
  Serious: Yes (Death)
  Sender: FDA-Public Use
  Company Number: 2008SP001825

PATIENT
  Age: 7 Year
  Sex: Male

DRUGS (9)
  1. XOPENEX [Suspect]
     Indication: ASTHMA
     Dosage: 0.31MG/3ML;PRN;INHALATION 0.63MG/3ML;PRN;INHALATION
     Route: 055
     Dates: start: 20050801
  2. XOPENEX HFA [Suspect]
     Indication: ASTHMA
     Dosage: 90 UG;PRN;INHALATION
     Route: 055
     Dates: start: 20080528
  3. DUONEB [Concomitant]
  4. SINGULAIR [Concomitant]
  5. PREVACID [Concomitant]
  6. SYMBICORT [Concomitant]
  7. NASONEX [Concomitant]
  8. ALBUTEROL [Concomitant]
  9. CORTICOSTEROIDS FOR SYSTEMIC USE [Concomitant]

REACTIONS (6)
  - CARDIO-RESPIRATORY ARREST [None]
  - CHEST DISCOMFORT [None]
  - LOSS OF CONSCIOUSNESS [None]
  - MALAISE [None]
  - RESPIRATORY DISTRESS [None]
  - SUDDEN DEATH [None]
